FAERS Safety Report 5659437-5 (Version None)
Quarter: 2008Q1

REPORT INFORMATION
  Report Type: 
  Country: None (occurrence: None)
  Receive Date: 20080307
  Receipt Date: 20080307
  Transmission Date: 20080703
  Serious: Yes (Life-Threatening, Hospitalization, Other)
  Sender: FDA-Public Use
  Company Number: None

PATIENT
  Age: 49 Year
  Sex: Male
  Weight: 72.5755 kg

DRUGS (2)
  1. FENTANYL [Suspect]
     Indication: BACK PAIN
     Dosage: 50MCG/HR REDUCED IN NOV 07 TO 25MCG/HR  CHANGED EVERY 3 DAYS  TRANSDERMAL PATCH
     Route: 062
     Dates: start: 20070501, end: 20080101
  2. FENTANYL [Suspect]
     Indication: PAIN IN EXTREMITY
     Dosage: 50MCG/HR REDUCED IN NOV 07 TO 25MCG/HR  CHANGED EVERY 3 DAYS  TRANSDERMAL PATCH
     Route: 062
     Dates: start: 20070501, end: 20080101

REACTIONS (8)
  - ANOREXIA [None]
  - ANXIETY [None]
  - DEPRESSION [None]
  - DISEASE RECURRENCE [None]
  - DYSPNOEA [None]
  - NAUSEA [None]
  - VOMITING [None]
  - WEIGHT DECREASED [None]
